FAERS Safety Report 8760835 (Version 1)
Quarter: 2012Q4

REPORT INFORMATION
  Report Type: 
  Country: US (occurrence: US)
  Receive Date: 20120829
  Receipt Date: 20120829
  Transmission Date: 20130627
  Serious: Yes (Life-Threatening, Hospitalization, Other)
  Sender: FDA-Public Use
  Company Number: US-ELI_LILLY_AND_COMPANY-US201208005039

PATIENT
  Sex: Male

DRUGS (5)
  1. EFFIENT [Suspect]
     Dosage: 10 mg, unknown
  2. ASPIRIN [Concomitant]
     Dosage: 81 mg, UNK
  3. ASPIRIN [Concomitant]
     Dosage: 325 mg, UNK
  4. PROTON PUMP INHIBITORS [Concomitant]
     Dosage: UNK
  5. ANTIHYPERTENSIVES [Concomitant]

REACTIONS (3)
  - Cardio-respiratory arrest [Recovered/Resolved]
  - Gastrointestinal haemorrhage [Recovering/Resolving]
  - Incorrect dose administered [Unknown]
